FAERS Safety Report 6429886-6 (Version None)
Quarter: 2009Q4

REPORT INFORMATION
  Report Type: 
  Country: None (occurrence: None)
  Receive Date: 20091106
  Receipt Date: 20091102
  Transmission Date: 20100525
  Serious: Yes (Death)
  Sender: FDA-Public Use
  Company Number: US-JNJFOC-20091101350

PATIENT
  Sex: Male
  Weight: 124.29 kg

DRUGS (8)
  1. FENTANYL [Suspect]
     Indication: DRUG USE FOR UNKNOWN INDICATION
     Route: 065
  2. COCAINE [Suspect]
     Indication: DRUG USE FOR UNKNOWN INDICATION
  3. DIAZEPAM [Suspect]
     Indication: DRUG USE FOR UNKNOWN INDICATION
  4. OXAZEPAM [Concomitant]
  5. BENZOYLECGONINE [Concomitant]
  6. TEMAZEPAM [Concomitant]
  7. ACETAMINOPHEN [Concomitant]
  8. LIDOCAINE [Concomitant]

REACTIONS (2)
  - CARDIOVASCULAR DISORDER [None]
  - DRUG TOXICITY [None]
